FAERS Safety Report 9553363 (Version 2)
Quarter: 2014Q1

REPORT INFORMATION
  Report Type: Report from Study
  Country: BE (occurrence: BE)
  Receive Date: 20130925
  Receipt Date: 20140313
  Transmission Date: 20141002
  Serious: Yes (Hospitalization, Other)
  Sender: FDA-Public Use
  Company Number: BE-ABBVIE-13P-013-1147749-00

PATIENT
  Age: 62 Year
  Sex: Male

DRUGS (3)
  1. HUMIRA 40MG/0.4ML [Suspect]
     Indication: RHEUMATOID ARTHRITIS
     Dates: start: 20120808
  2. AUGMENTIN [Concomitant]
     Indication: PROPHYLAXIS
     Dates: start: 201307, end: 201308
  3. AUGMENTIN [Concomitant]
     Indication: WOUND INFECTION

REACTIONS (1)
  - Wound [Recovered/Resolved]
